FAERS Safety Report 15403114 (Version 1)
Quarter: 2018Q3

REPORT INFORMATION
  Report Type: Spontaneous
  Country: US (occurrence: US)
  Receive Date: 20180918
  Receipt Date: 20180918
  Transmission Date: 20181010
  Serious: Yes (Disabling)
  Sender: FDA-Public Use
  Company Number: None

PATIENT
  Age: 82 Year
  Sex: Female
  Weight: 74.25 kg

DRUGS (10)
  1. OMEPRAZOLE. [Concomitant]
     Active Substance: OMEPRAZOLE
  2. GABAPENTIN 300 MG CAP AUR, YELLOW CAPSULE HAS D 03 ON IT [Suspect]
     Active Substance: GABAPENTIN
     Indication: POST HERPETIC NEURALGIA
     Dosage: ?          QUANTITY:1 DF DOSAGE FORM;?
     Route: 048
     Dates: start: 20180816, end: 20180918
  3. LINSOPRYL/HYDROCHLOROTHIAZIDE [Concomitant]
  4. NAPROSYN [Concomitant]
     Active Substance: NAPROXEN
  5. MILK OF MAGNESIA [Concomitant]
     Active Substance: MAGNESIUM HYDROXIDE
  6. SHOWER CHAIR [Concomitant]
  7. MULTI?VITAMIN [Concomitant]
     Active Substance: .ALPHA.-TOCOPHEROL ACETATE, DL-\ASCORBIC ACID\CYANOCOBALAMIN\FLUORIDE ION\FOLIC ACID\NIACIN\PYRIDOXINE\RIBOFLAVIN\THIAMINE\VITAMIN A\VITAMIN D
  8. GABAPENTIN 300 MG CAP AUR, YELLOW CAPSULE HAS D 03 ON IT [Suspect]
     Active Substance: GABAPENTIN
     Indication: SCIATICA
     Dosage: ?          QUANTITY:1 DF DOSAGE FORM;?
     Route: 048
     Dates: start: 20180816, end: 20180918
  9. ROLLATOR WALKER [Concomitant]
  10. ACETAMINOPHEN. [Concomitant]
     Active Substance: ACETAMINOPHEN

REACTIONS (7)
  - Sciatica [None]
  - Condition aggravated [None]
  - Gait disturbance [None]
  - Arthralgia [None]
  - Drug ineffective [None]
  - Somnolence [None]
  - Product substitution issue [None]

NARRATIVE: CASE EVENT DATE: 20180916
